FAERS Safety Report 4549330-3 (Version None)
Quarter: 2005Q1

REPORT INFORMATION
  Report Type: 
  Country: None (occurrence: None)
  Receive Date: 20050106
  Receipt Date: 20041223
  Transmission Date: 20050727
  Serious: Yes (Disabling)
  Sender: FDA-Public Use
  Company Number: 2004S1000096

PATIENT
  Age: 31 Year
  Sex: Female

DRUGS (2)
  1. ACITRETIN (ACITRETIN) [Suspect]
     Indication: KERATOSIS FOLLICULAR
     Dosage: 30 MG; QD; ORAL
     Route: 048
     Dates: start: 19940415
  2. AUREOCORT [Concomitant]

REACTIONS (1)
  - MANIA [None]
